FAERS Safety Report 16875396 (Version 1)
Quarter: 2019Q4

REPORT INFORMATION
  Report Type: Report from Study
  Country: US (occurrence: US)
  Receive Date: 20191002
  Receipt Date: 20191002
  Transmission Date: 20200122
  Serious: Yes (Hospitalization)
  Sender: FDA-Public Use
  Company Number: US-ROCHE-2421168

PATIENT
  Age: 56 Year
  Sex: Male
  Weight: 121 kg

DRUGS (4)
  1. OBINUTUZUMAB. [Suspect]
     Active Substance: OBINUTUZUMAB
     Dosage: ON DAY 1?ON 20/AUG/2019, HE RECEIVED LAST DOSE OF INTRAVENOUS OBINUTUZUMAB
     Route: 042
     Dates: start: 20190820
  2. LENALIDOMIDE [Suspect]
     Active Substance: LENALIDOMIDE
     Dosage: ON DAYS 1-21?ON 09/SEP/2019, HE RECEIVED LAST DOSE OF ORAL LENALIDOMIDE
     Route: 048
     Dates: start: 20190820
  3. OBINUTUZUMAB. [Suspect]
     Active Substance: OBINUTUZUMAB
     Indication: B-CELL LYMPHOMA
     Dosage: ON DAY 1
     Route: 042
     Dates: start: 20190624
  4. LENALIDOMIDE [Suspect]
     Active Substance: LENALIDOMIDE
     Indication: B-CELL LYMPHOMA
     Dosage: ON DAYS 1-21
     Route: 048
     Dates: start: 20190624

REACTIONS (1)
  - Skin infection [Recovering/Resolving]

NARRATIVE: CASE EVENT DATE: 20190913
